FAERS Safety Report 10405266 (Version 1)
Quarter: 2014Q3

REPORT INFORMATION
  Report Type: Spontaneous
  Country: IE (occurrence: CA)
  Receive Date: 20140825
  Receipt Date: 20140825
  Transmission Date: 20150326
  Serious: Yes (Other)
  Sender: FDA-Public Use
  Company Number: 2014SP004840

PATIENT
  Age: 48 Year
  Sex: Female

DRUGS (10)
  1. PANCREATIN [Concomitant]
     Active Substance: PANCRELIPASE
  2. PANTOPRAZOLE [Concomitant]
     Active Substance: PANTOPRAZOLE SODIUM
  3. MACROGOL [Concomitant]
     Active Substance: POLYETHYLENE GLYCOLS
  4. PROCHLORPERAZINE. [Concomitant]
     Active Substance: PROCHLORPERAZINE
  5. VALTREX [Suspect]
     Active Substance: VALACYCLOVIR HYDROCHLORIDE
     Indication: PRODUCT USED FOR UNKNOWN INDICATION
     Route: 048
  6. DOMPERIDONE [Concomitant]
     Active Substance: DOMPERIDONE
  7. GEMCITABINE [Suspect]
     Active Substance: GEMCITABINE\GEMCITABINE HYDROCHLORIDE
     Indication: PRODUCT USED FOR UNKNOWN INDICATION
  8. COLACE [Concomitant]
     Active Substance: DOCUSATE SODIUM
  9. IMOVANE [Concomitant]
     Active Substance: ZOPICLONE
  10. CALCIUM CARBONATE W/VITAMIN D NOS [Concomitant]
     Active Substance: CALCIUM CARBONATE\VITAMIN D

REACTIONS (1)
  - Thrombotic thrombocytopenic purpura [Recovered/Resolved]
